FAERS Safety Report 21177296 (Version 1)
Quarter: 2022Q3

REPORT INFORMATION
  Report Type: Spontaneous
  Country: US (occurrence: None)
  Receive Date: 20220804
  Receipt Date: 20220804
  Transmission Date: 20221027
  Serious: Yes (Death)
  Sender: FDA-Public Use
  Company Number: None

PATIENT
  Age: 58 Year
  Sex: Male
  Weight: 70 kg

DRUGS (1)
  1. TECARTUS [Suspect]
     Active Substance: BREXUCABTAGENE AUTOLEUCEL
     Indication: Mantle cell lymphoma
     Dosage: FREQUENCY : ONCE;?
     Route: 042

REACTIONS (4)
  - Cytokine release syndrome [None]
  - Hypotension [None]
  - Acute respiratory distress syndrome [None]
  - Malignant pleural effusion [None]

NARRATIVE: CASE EVENT DATE: 20220512
